FAERS Safety Report 24779645 (Version 5)
Quarter: 2025Q2

REPORT INFORMATION
  Report Type: Report from Study
  Country: DE (occurrence: DE)
  Receive Date: 20241226
  Receipt Date: 20250606
  Transmission Date: 20250716
  Serious: Yes (Hospitalization, Other)
  Sender: ABBVIE
  Company Number: DE-ABBVIE-6064876

PATIENT
  Age: 73 Year
  Sex: Male

DRUGS (2)
  1. CARBIDOPA\LEVODOPA [Suspect]
     Active Substance: CARBIDOPA\LEVODOPA
     Indication: Parkinson^s disease
     Route: 050
     Dates: start: 20220523
  2. CARBIDOPA\LEVODOPA [Suspect]
     Active Substance: CARBIDOPA\LEVODOPA
     Route: 050

REACTIONS (30)
  - Colonoscopy [Unknown]
  - Immobile [Not Recovered/Not Resolved]
  - Hypersomnia [Not Recovered/Not Resolved]
  - Influenza [Not Recovered/Not Resolved]
  - Fatigue [Not Recovered/Not Resolved]
  - Delirium [Unknown]
  - Influenza [Unknown]
  - Gastroenteritis [Unknown]
  - Parkinson^s disease [Unknown]
  - Night sweats [Unknown]
  - Device dislocation [Unknown]
  - Staphylococcus test positive [Unknown]
  - Hallucination [Unknown]
  - Fatigue [Not Recovered/Not Resolved]
  - Device occlusion [Unknown]
  - Parkinsonian gait [Unknown]
  - Muscle rigidity [Unknown]
  - Leukocytosis [Unknown]
  - C-reactive protein increased [Unknown]
  - Disturbance in attention [Unknown]
  - Dysarthria [Unknown]
  - Device issue [Unknown]
  - Dementia [Unknown]
  - Disorientation [Unknown]
  - Psychomotor retardation [Unknown]
  - Reduced facial expression [Unknown]
  - Megacolon [Unknown]
  - Pyrexia [Unknown]
  - Blood pressure decreased [Unknown]
  - General physical health deterioration [Not Recovered/Not Resolved]

NARRATIVE: CASE EVENT DATE: 20241201
